FAERS Safety Report 9224772 (Version 3)
Quarter: 2013Q3

REPORT INFORMATION
  Report Type: Report from Study
  Country: US (occurrence: US)
  Receive Date: 20130411
  Receipt Date: 20130808
  Transmission Date: 20140515
  Serious: Yes (Other)
  Sender: FDA-Public Use
  Company Number: US-ABBOTT-13P-163-1072036-00

PATIENT
  Age: 72 Year
  Sex: Female
  Weight: 89.44 kg

DRUGS (8)
  1. HUMIRA [Suspect]
     Indication: CROHN^S DISEASE
     Dates: start: 2007, end: 201003
  2. HUMIRA [Suspect]
     Dates: start: 20130226
  3. POTASSIUM CHLORIDE [Concomitant]
     Indication: PRODUCT USED FOR UNKNOWN INDICATION
  4. ASACOL [Concomitant]
     Indication: CROHN^S DISEASE
  5. OMEPRAZOLE [Concomitant]
     Indication: CROHN^S DISEASE
  6. METOPROLOL [Concomitant]
     Indication: BLOOD PRESSURE ABNORMAL
  7. HYDROCHLOROTHIAZIDE [Concomitant]
     Indication: BLOOD PRESSURE ABNORMAL
  8. ASPIRIN [Concomitant]
     Indication: PRODUCT USED FOR UNKNOWN INDICATION

REACTIONS (6)
  - Faecal incontinence [Recovering/Resolving]
  - Blood cholesterol abnormal [Unknown]
  - Hypersensitivity [Unknown]
  - Rash [Unknown]
  - Rash [Unknown]
  - Ileus [Unknown]
